FAERS Safety Report 20967894 (Version 1)
Quarter: 2022Q2

REPORT INFORMATION
  Report Type: Spontaneous
  Country: US (occurrence: None)
  Receive Date: 20220616
  Receipt Date: 20220616
  Transmission Date: 20220721
  Serious: Yes (Hospitalization)
  Sender: FDA-Public Use
  Company Number: None

PATIENT
  Sex: Male

DRUGS (8)
  1. CELLCEPT [Suspect]
     Active Substance: MYCOPHENOLATE MOFETIL
     Indication: Renal transplant
     Dosage: FREQUENCY : EVERY 12 HOURS;?
     Route: 048
     Dates: start: 20200610
  2. CYCLOSPORINE [Concomitant]
  3. ELIQUIS [Concomitant]
     Active Substance: APIXABAN
  4. ENALAPRIL TAB [Concomitant]
  5. METOPROL TAR TAB [Concomitant]
  6. NIFEDIPINE TAB ER [Concomitant]
  7. REPAGLINIDE TAB [Concomitant]
  8. ROSUVASTATIN [Concomitant]
     Active Substance: ROSUVASTATIN

REACTIONS (1)
  - COVID-19 [None]
